FAERS Safety Report 13238881 (Version 1)
Quarter: 2017Q1

REPORT INFORMATION
  Report Type: Spontaneous
  Country: FR (occurrence: FR)
  Receive Date: 20170216
  Receipt Date: 20170216
  Transmission Date: 20170428
  Serious: Yes (Hospitalization)
  Sender: FDA-Public Use
  Company Number: FR-ORION CORPORATION ORION PHARMA-TREX2016-2769

PATIENT
  Age: 77 Year
  Sex: Male

DRUGS (9)
  1. CORTANCYL [Suspect]
     Active Substance: PREDNISONE
     Dosage: STRENGTH: 5 MG
     Route: 048
     Dates: start: 20150519, end: 20150608
  2. IMETH [Suspect]
     Active Substance: METHOTREXATE SODIUM
     Indication: RHEUMATOID ARTHRITIS
     Dosage: STRENGTH: 10 MG
     Route: 048
     Dates: start: 20150416
  3. COUMADINE [Concomitant]
     Active Substance: WARFARIN SODIUM
     Route: 048
     Dates: start: 2014
  4. SPECIAFOLDINE [Concomitant]
     Active Substance: FOLIC ACID
     Route: 048
     Dates: start: 20150416
  5. CORTANCYL [Suspect]
     Active Substance: PREDNISONE
     Dosage: STRENGTH: 5 MG
     Route: 048
     Dates: start: 20150416, end: 20150518
  6. CORTANCYL [Suspect]
     Active Substance: PREDNISONE
     Dosage: STRENGTH: 5 MG
     Route: 048
     Dates: start: 20150608, end: 201506
  7. CORTANCYL [Suspect]
     Active Substance: PREDNISONE
     Dosage: STRENGTH: 5 MG
     Route: 048
     Dates: start: 201506, end: 20150702
  8. CORTANCYL [Suspect]
     Active Substance: PREDNISONE
     Dosage: STRENGTH: 5 MG
     Route: 048
     Dates: start: 20150403, end: 20150416
  9. CARDENSIEL [Concomitant]
     Active Substance: BISOPROLOL FUMARATE
     Indication: MYOCARDIAL ISCHAEMIA
     Route: 048
     Dates: start: 2012

REACTIONS (1)
  - Coronary artery stenosis [Recovered/Resolved with Sequelae]

NARRATIVE: CASE EVENT DATE: 20150618
